FAERS Safety Report 18344153 (Version 1)
Quarter: 2020Q4

REPORT INFORMATION
  Report Type: Spontaneous
  Country: US (occurrence: US)
  Receive Date: 20201002
  Receipt Date: 20201002
  Transmission Date: 20210114
  Serious: Yes (Death)
  Sender: FDA-Public Use
  Company Number: None

PATIENT
  Age: 47 Year
  Sex: Female

DRUGS (2)
  1. SILDENAFIL. [Concomitant]
     Active Substance: SILDENAFIL
  2. AMBRISENTAN TAB 10 MG [Suspect]
     Active Substance: AMBRISENTAN
     Indication: PULMONARY HYPERTENSION
     Route: 048
     Dates: start: 201912, end: 202009

REACTIONS (4)
  - Treatment noncompliance [None]
  - Dyspnoea [None]
  - Pyrexia [None]
  - Cardio-respiratory arrest [None]

NARRATIVE: CASE EVENT DATE: 20200915
